FAERS Safety Report 6112243-X (Version None)
Quarter: 2009Q1

REPORT INFORMATION
  Report Type: 
  Country: None (occurrence: None)
  Receive Date: 20090310
  Receipt Date: 20090223
  Transmission Date: 20090719
  Serious: Yes (Other)
  Sender: FDA-Public Use
  Company Number: 2009000508

PATIENT
  Age: 60 Year
  Sex: Male

DRUGS (1)
  1. TARCEVA [Suspect]
     Dosage: (150 MG, QD), ORAL
     Route: 048
     Dates: start: 20080301

REACTIONS (1)
  - MYELOID LEUKAEMIA [None]
